FAERS Safety Report 7530001-6 (Version None)
Quarter: 2011Q2

REPORT INFORMATION
  Report Type: 
  Country: None (occurrence: None)
  Receive Date: 20110607
  Receipt Date: 20110526
  Transmission Date: 20111010
  Serious: No
  Sender: FDA-Public Use
  Company Number: PHHY2011US43495

PATIENT
  Sex: Male

DRUGS (5)
  1. TIZANIDINE HCL [Concomitant]
     Dosage: 12 MG, QHS
  2. NUVIGIL [Concomitant]
     Dosage: 150 MG, BID
     Route: 048
  3. MARIJUANA [Concomitant]
     Dosage: UNK
  4. MOBIC [Concomitant]
     Dosage: 15 MG, QHS
  5. GILENYA [Suspect]
     Indication: MULTIPLE SCLEROSIS
     Dosage: 0.5 MG, QD
     Route: 048
     Dates: start: 20110427

REACTIONS (1)
  - PSORIASIS [None]
